FAERS Safety Report 20447000 (Version 1)
Quarter: 2022Q1

REPORT INFORMATION
  Report Type: Spontaneous
  Country: US (occurrence: US)
  Receive Date: 20220209
  Receipt Date: 20220209
  Transmission Date: 20220423
  Serious: Yes (Other)
  Sender: FDA-Public Use
  Company Number: US-AMGEN-USASP2022019552

PATIENT
  Age: 55 Year
  Sex: Female

DRUGS (7)
  1. FILGRASTIM [Suspect]
     Active Substance: FILGRASTIM
     Indication: Neutropenia
     Dosage: 2 DOSES
     Route: 065
  2. FILGRASTIM [Suspect]
     Active Substance: FILGRASTIM
     Indication: Off label use
  3. PREDNISONE [Concomitant]
     Active Substance: PREDNISONE
  4. TACROLIMUS [Concomitant]
     Active Substance: TACROLIMUS
  5. MYCOPHENOLATE MOFETIL [Concomitant]
     Active Substance: MYCOPHENOLATE MOFETIL
  6. VALGANCICLOVIR [Concomitant]
     Active Substance: VALGANCICLOVIR
  7. LOSARTAN [Concomitant]
     Active Substance: LOSARTAN

REACTIONS (5)
  - Kidney transplant rejection [Unknown]
  - Chronic allograft nephropathy [Unknown]
  - Neutropenia [Unknown]
  - Cytomegalovirus test positive [Unknown]
  - Off label use [Unknown]
